FAERS Safety Report 5743812-4 (Version None)
Quarter: 2008Q2

REPORT INFORMATION
  Report Type: 
  Country: None (occurrence: None)
  Receive Date: 20080519
  Receipt Date: 20080519
  Transmission Date: 20081010
  Serious: No
  Sender: FDA-Public Use
  Company Number: None

PATIENT
  Age: 52 Year
  Sex: Female
  Weight: 81.6475 kg

DRUGS (3)
  1. BONIVA [Suspect]
     Indication: ARTHRITIS
     Dosage: 150 MG ONCE A MONTH PO
     Route: 048
     Dates: start: 20080515, end: 20080531
  2. BONIVA [Suspect]
     Indication: OSTEOPENIA
     Dosage: 150 MG ONCE A MONTH PO
     Route: 048
     Dates: start: 20080515, end: 20080531
  3. BONIVA [Suspect]
     Indication: OSTEOPOROSIS
     Dosage: 150 MG ONCE A MONTH PO
     Route: 048
     Dates: start: 20080515, end: 20080531

REACTIONS (11)
  - ABDOMINAL PAIN [None]
  - ACTIVITIES OF DAILY LIVING IMPAIRED [None]
  - ARTHRALGIA [None]
  - BACK PAIN [None]
  - CHILLS [None]
  - GAIT DISTURBANCE [None]
  - HEADACHE [None]
  - HYPERHIDROSIS [None]
  - MUSCULAR WEAKNESS [None]
  - NECK PAIN [None]
  - RENAL PAIN [None]
